FAERS Safety Report 13121737 (Version 2)
Quarter: 2017Q1

REPORT INFORMATION
  Report Type: Spontaneous
  Country: JP (occurrence: JP)
  Receive Date: 20170117
  Receipt Date: 20170124
  Transmission Date: 20170428
  Serious: Yes (Hospitalization, Other)
  Sender: FDA-Public Use
  Company Number: JP-SA-2017SA007142

PATIENT
  Age: 64 Year
  Sex: Male
  Weight: 60.5 kg

DRUGS (10)
  1. TSUMURA DAIKENCHUTO EXTRACT GRANULES [Concomitant]
     Active Substance: HERBALS
     Indication: ABDOMINAL PAIN
     Route: 048
     Dates: start: 20161123
  2. ENZYMES NOS [Concomitant]
     Indication: ABDOMINAL PAIN
     Route: 048
     Dates: start: 20161123
  3. SOLOSTAR [Concomitant]
     Active Substance: DEVICE
     Dates: start: 20161130
  4. BIOFERMIN [Concomitant]
     Active Substance: BACILLUS SUBTILIS\LACTOBACILLUS ACIDOPHILUS\STREPTOCOCCUS FAECAIS
     Indication: ABDOMINAL PAIN
     Route: 048
     Dates: start: 20161123
  5. TRESIBA [Concomitant]
     Active Substance: INSULIN DEGLUDEC
     Dosage: DOSE:14 UNIT(S)
     Route: 058
     Dates: start: 20161130
  6. EBIOS [Concomitant]
     Indication: ABDOMINAL PAIN
     Route: 048
     Dates: start: 20161123
  7. LAFUTIDINE [Concomitant]
     Active Substance: LAFUTIDINE
     Route: 048
     Dates: start: 20161123
  8. LANTUS [Suspect]
     Active Substance: INSULIN GLARGINE
     Indication: TYPE 2 DIABETES MELLITUS
     Dosage: DOSE:14 UNIT(S)
     Route: 065
     Dates: start: 20160930
  9. APIDRA SOLOSTAR [Concomitant]
     Active Substance: INSULIN GLULISINE
     Dosage: DOSE:12 UNIT(S)
     Route: 058
     Dates: start: 20161130
  10. MYSLEE [Concomitant]
     Active Substance: ZOLPIDEM TARTRATE
     Indication: INSOMNIA
     Route: 048
     Dates: start: 20160410

REACTIONS (1)
  - Pancreatic carcinoma [Not Recovered/Not Resolved]

NARRATIVE: CASE EVENT DATE: 20170104
